FAERS Safety Report 9258063 (Version 1)
Quarter: 2013Q2

REPORT INFORMATION
  Report Type: Spontaneous
  Country: US (occurrence: None)
  Receive Date: 20130424
  Receipt Date: 20130424
  Transmission Date: 20140414
  Serious: Yes (Life-Threatening, Hospitalization, Disabling, Other)
  Sender: FDA-Public Use
  Company Number: None

PATIENT
  Sex: Male
  Weight: 117.03 kg

DRUGS (9)
  1. RISPERDAL CONSTA [Suspect]
     Indication: SCHIZOPHRENIA
     Dosage: 2 SHOTS A MONTH. 2008-2013
  2. RISPERDAL CONSTA [Suspect]
     Indication: BIPOLAR DISORDER
     Dosage: 2 SHOTS A MONTH. 2008-2013
  3. BENZOPROTEND [Concomitant]
  4. TRAMADOL [Concomitant]
  5. VALSARTAN [Concomitant]
  6. LAMOTRIGINE [Concomitant]
  7. PREVASTATIN [Concomitant]
  8. TRAZODONE [Concomitant]
  9. CITALOPRAM [Concomitant]

REACTIONS (10)
  - Vision blurred [None]
  - Heart rate increased [None]
  - Muscle twitching [None]
  - Neck pain [None]
  - Constipation [None]
  - Tremor [None]
  - Joint lock [None]
  - Abdominal pain upper [None]
  - Dyspepsia [None]
  - Furuncle [None]
